FAERS Safety Report 10022461 (Version 6)
Quarter: 2015Q3

REPORT INFORMATION
  Report Type: Spontaneous
  Country: US (occurrence: US)
  Receive Date: 20140319
  Receipt Date: 20150804
  Transmission Date: 20151125
  Serious: Yes (Hospitalization, Disabling, Other)
  Sender: FDA-Public Use
  Company Number: US-SANOFI-AVENTIS-A03200900096

PATIENT
  Age: 52 Year
  Sex: Female

DRUGS (6)
  1. PLAVIX [Suspect]
     Active Substance: CLOPIDOGREL BISULFATE
     Indication: CEREBROVASCULAR ACCIDENT
     Dosage: UNIT DOSE: 75 MG
     Route: 048
     Dates: start: 19981101
  2. PLAVIX [Suspect]
     Active Substance: CLOPIDOGREL BISULFATE
     Indication: TRANSIENT ISCHAEMIC ATTACK
     Dosage: UNIT DOSE: 75 MG
     Route: 048
     Dates: start: 19981101
  3. PLAVIX [Suspect]
     Active Substance: CLOPIDOGREL BISULFATE
     Indication: TRANSIENT ISCHAEMIC ATTACK
     Route: 065
     Dates: start: 20010522, end: 20021104
  4. PLAVIX [Suspect]
     Active Substance: CLOPIDOGREL BISULFATE
     Indication: CEREBROVASCULAR ACCIDENT
     Route: 048
     Dates: end: 200411
  5. PLAVIX [Suspect]
     Active Substance: CLOPIDOGREL BISULFATE
     Indication: CEREBROVASCULAR ACCIDENT
     Route: 065
     Dates: start: 20010522, end: 20021104
  6. PLAVIX [Suspect]
     Active Substance: CLOPIDOGREL BISULFATE
     Indication: TRANSIENT ISCHAEMIC ATTACK
     Route: 048
     Dates: end: 200411

REACTIONS (17)
  - Economic problem [Not Recovered/Not Resolved]
  - Drug hypersensitivity [Unknown]
  - Multiple injuries [Not Recovered/Not Resolved]
  - Deformity [Not Recovered/Not Resolved]
  - Anhedonia [Not Recovered/Not Resolved]
  - Social problem [Not Recovered/Not Resolved]
  - Sensory loss [Unknown]
  - Physical disability [Not Recovered/Not Resolved]
  - Pain [Not Recovered/Not Resolved]
  - Aphasia [Unknown]
  - Tension [Not Recovered/Not Resolved]
  - Psychological trauma [Not Recovered/Not Resolved]
  - Loss of employment [Not Recovered/Not Resolved]
  - Cerebrovascular accident [Unknown]
  - Brain injury [Recovered/Resolved with Sequelae]
  - Internal haemorrhage [Unknown]
  - Thrombotic thrombocytopenic purpura [Unknown]

NARRATIVE: CASE EVENT DATE: 200103
